FAERS Safety Report 12626947 (Version 1)
Quarter: 2016Q3

REPORT INFORMATION
  Report Type: Report from Study
  Country: US (occurrence: US)
  Receive Date: 20160805
  Receipt Date: 20160805
  Transmission Date: 20161109
  Serious: Yes (Life-Threatening, Hospitalization, Other)
  Sender: FDA-Public Use
  Company Number: US-SAOL THERAPEUTICS-2016SAO00327

PATIENT
  Age: 73 Year
  Sex: Male

DRUGS (1)
  1. LIORESAL [Suspect]
     Active Substance: BACLOFEN
     Indication: MUSCLE SPASTICITY
     Dosage: 449.6 ?G, \DAY
     Route: 037

REACTIONS (4)
  - Malaise [Recovered/Resolved]
  - Wound dehiscence [Recovered/Resolved]
  - Cystitis [Recovered/Resolved]
  - Medical device site infection [Recovered/Resolved]

NARRATIVE: CASE EVENT DATE: 20160301
